FAERS Safety Report 5135382-9 (Version None)
Quarter: 2006Q4

REPORT INFORMATION
  Report Type: 
  Country: None (occurrence: None)
  Receive Date: 20061026
  Receipt Date: 20060915
  Transmission Date: 20070319
  Serious: Yes (Other)
  Sender: FDA-Public Use
  Company Number: TR-BRISTOL-MYERS SQUIBB COMPANY-13510979

PATIENT
  Age: 49 Year
  Sex: Male

DRUGS (1)
  1. ENTECAVIR [Suspect]
     Indication: HEPATITIS B
     Route: 048
     Dates: start: 20031117, end: 20060801

REACTIONS (3)
  - ACANTHOSIS [None]
  - LEUKOPLAKIA [None]
  - SQUAMOUS CELL CARCINOMA [None]
